FAERS Safety Report 12632130 (Version 2)
Quarter: 2016Q3

REPORT INFORMATION
  Report Type: Spontaneous
  Country: US (occurrence: US)
  Receive Date: 20160808
  Receipt Date: 20160808
  Transmission Date: 20161109
  Serious: No
  Sender: FDA-Public Use
  Company Number: US-BEH-2016061949

PATIENT
  Age: 4 Year
  Sex: Female
  Weight: 12 kg

DRUGS (12)
  1. POLY-VI-SOL [Concomitant]
  2. ACETAMINOPHEN. [Concomitant]
     Active Substance: ACETAMINOPHEN
  3. PROAIR HFA [Concomitant]
     Active Substance: ALBUTEROL SULFATE
  4. CLARITIN [Concomitant]
     Active Substance: LORATADINE
  5. EPIPEN [Concomitant]
     Active Substance: EPINEPHRINE
  6. VSL#3 [Concomitant]
     Active Substance: PROBIOTICS NOS
  7. TRILEPTAL [Concomitant]
     Active Substance: OXCARBAZEPINE
  8. RANITIDINE. [Concomitant]
     Active Substance: RANITIDINE
  9. LIDOCAINE. [Concomitant]
     Active Substance: LIDOCAINE
  10. FLOVENT [Concomitant]
     Active Substance: FLUTICASONE PROPIONATE
  11. HIZENTRA [Suspect]
     Active Substance: HUMAN IMMUNOGLOBULIN G
     Indication: HYPOGAMMAGLOBULINAEMIA
     Route: 058
     Dates: start: 20150508
  12. DIPHENHYDRAMINE. [Concomitant]
     Active Substance: DIPHENHYDRAMINE

REACTIONS (1)
  - Pyrexia [Unknown]

NARRATIVE: CASE EVENT DATE: 20160216
